FAERS Safety Report 22915192 (Version 5)
Quarter: 2023Q4

REPORT INFORMATION
  Report Type: Report from Study
  Country: US (occurrence: US)
  Receive Date: 20230907
  Receipt Date: 20231207
  Transmission Date: 20240109
  Serious: Yes (Hospitalization, Other)
  Sender: FDA-Public Use
  Company Number: US-SANDOZ-SDZ2023US006227

PATIENT
  Sex: Female
  Weight: 60 kg

DRUGS (5)
  1. ADEMPAS [Suspect]
     Active Substance: RIOCIGUAT
     Indication: Product used for unknown indication
     Dosage: UNK
     Route: 065
  2. AMBRISENTAN [Suspect]
     Active Substance: AMBRISENTAN
     Indication: Product used for unknown indication
     Dosage: UNK
     Route: 065
  3. TREPROSTINIL [Suspect]
     Active Substance: TREPROSTINIL
     Dosage: 17.5NG/KG/ MIN
     Route: 058
     Dates: start: 20220622
  4. TREPROSTINIL [Suspect]
     Active Substance: TREPROSTINIL
     Indication: Pulmonary arterial hypertension
     Dosage: UNK, CONT,
     Route: 058
     Dates: start: 20220622
  5. TREPROSTINIL [Suspect]
     Active Substance: TREPROSTINIL
     Dosage: CONT, 23.5 NG/KG/ MIN
     Route: 058
     Dates: start: 20220622

REACTIONS (18)
  - Fluid retention [Unknown]
  - Respiratory tract infection [Unknown]
  - Rectal haemorrhage [Unknown]
  - Administration site pain [Unknown]
  - Decreased appetite [Unknown]
  - Injection site inflammation [Unknown]
  - Anxiety [Unknown]
  - Arthralgia [Unknown]
  - Diarrhoea [Unknown]
  - Vomiting [Unknown]
  - Headache [Unknown]
  - Injection site erythema [Unknown]
  - Abdominal pain upper [Unknown]
  - Nausea [Unknown]
  - Pain in extremity [Unknown]
  - Illness [Unknown]
  - Weight decreased [Unknown]
  - Dyspnoea [Unknown]
